FAERS Safety Report 8347423-6 (Version None)
Quarter: 2012Q2

REPORT INFORMATION
  Report Type: 
  Country: None (occurrence: None)
  Receive Date: 20120509
  Receipt Date: 20120206
  Transmission Date: 20120825
  Serious: Yes (Death, Hospitalization)
  Sender: FDA-Public Use
  Company Number: KH-ROCHE-1038365

PATIENT
  Age: 12 Year
  Sex: Male

DRUGS (1)
  1. TAMIFLU [Suspect]
     Indication: PRODUCT USED FOR UNKNOWN INDICATION
     Dates: start: 20060405, end: 20060405

REACTIONS (2)
  - DEATH [None]
  - INFLUENZA [None]
